FAERS Safety Report 8180173-8 (Version None)
Quarter: 2012Q1

REPORT INFORMATION
  Report Type: 
  Country: None (occurrence: None)
  Receive Date: 20120302
  Receipt Date: 20120217
  Transmission Date: 20120608
  Serious: Yes (Hospitalization, Other)
  Sender: FDA-Public Use
  Company Number: DE-AMGEN-DEUSP2011047159

PATIENT
  Age: 38 Year
  Sex: Male
  Weight: 79 kg

DRUGS (5)
  1. PREDNISONE TAB [Concomitant]
     Indication: ANKYLOSING SPONDYLITIS
     Dosage: 5 MG, 1X/DAY
     Dates: start: 20100301
  2. IBUPROFEN [Concomitant]
     Indication: PAIN
     Dosage: UNK
  3. PREDNISOLONE [Concomitant]
     Indication: ANKYLOSING SPONDYLITIS
     Dosage: 10 MG, 1X/DAY
     Dates: start: 20100401
  4. RESOCHIN [Concomitant]
     Indication: ANKYLOSING SPONDYLITIS
     Dosage: UNK
     Dates: start: 20110801, end: 20110101
  5. ENBREL [Suspect]
     Indication: ANKYLOSING SPONDYLITIS
     Dosage: 25 MG, WEEKLY
     Dates: start: 20101015, end: 20110701

REACTIONS (9)
  - LYMPHOPENIA [None]
  - MYOSITIS [None]
  - PLEURISY [None]
  - HYPERHIDROSIS [None]
  - MIXED CONNECTIVE TISSUE DISEASE [None]
  - WEIGHT DECREASED [None]
  - RAYNAUD'S PHENOMENON [None]
  - MUSCULAR WEAKNESS [None]
  - ANAEMIA [None]
